FAERS Safety Report 5853730-9 (Version None)
Quarter: 2008Q3

REPORT INFORMATION
  Report Type: 
  Country: None (occurrence: None)
  Receive Date: 20080822
  Receipt Date: 20080814
  Transmission Date: 20090109
  Serious: Yes (Other)
  Sender: FDA-Public Use
  Company Number: CA-JNJFOC-20080803609

PATIENT
  Sex: Male
  Weight: 72.58 kg

DRUGS (7)
  1. REMICADE [Suspect]
     Dosage: INFUSION 1
     Route: 042
  2. REMICADE [Suspect]
     Dosage: INFUSION 1
     Route: 042
  3. REMICADE [Suspect]
     Dosage: INFUSION 1
     Route: 042
  4. REMICADE [Suspect]
     Dosage: INFUSION 1
     Route: 042
  5. REMICADE [Suspect]
     Dosage: INFUSION 1
     Route: 042
  6. REMICADE [Suspect]
     Dosage: INFUSION 1
     Route: 042
  7. REMICADE [Suspect]
     Indication: CROHN'S DISEASE
     Dosage: INFUSION 1
     Route: 042

REACTIONS (2)
  - DRUG INEFFECTIVE [None]
  - INTESTINAL RESECTION [None]
